FAERS Safety Report 4724457-1 (Version None)
Quarter: 2005Q3

REPORT INFORMATION
  Report Type: 
  Country: None (occurrence: None)
  Receive Date: 20050721
  Receipt Date: 20050630
  Transmission Date: 20060218
  Serious: Yes (Death, Hospitalization)
  Sender: FDA-Public Use
  Company Number: JP_050606839

PATIENT
  Age: 53 Year
  Sex: Female
  Weight: 41 kg

DRUGS (3)
  1. GEMZAR [Suspect]
     Indication: PANCREATIC CARCINOMA
     Dosage: 800 MG
     Dates: start: 20030201
  2. PREDNISOLONE [Concomitant]
  3. MORPHINE [Concomitant]

REACTIONS (8)
  - APPENDICITIS PERFORATED [None]
  - ASCITES [None]
  - FAECALITH [None]
  - IMMUNODEFICIENCY [None]
  - METASTASES TO LARGE INTESTINE [None]
  - NEOPLASM PROGRESSION [None]
  - PANCREATIC CARCINOMA METASTATIC [None]
  - PERITONITIS [None]
